FAERS Safety Report 7205770-5 (Version None)
Quarter: 2010Q4

REPORT INFORMATION
  Report Type: 
  Country: None (occurrence: None)
  Receive Date: 20101231
  Receipt Date: 20101223
  Transmission Date: 20110411
  Serious: Yes (Other)
  Sender: FDA-Public Use
  Company Number: CHPA2010US19571

PATIENT
  Age: 51 Year
  Sex: Male
  Weight: 95.238 kg

DRUGS (6)
  1. PREVACID 24 HR [Suspect]
     Indication: GASTROOESOPHAGEAL REFLUX DISEASE
     Dosage: UNK, UNK
  2. PREVACID 24 HR [Suspect]
     Indication: HERNIA
  3. CELEBREX [Suspect]
     Indication: ARTHRITIS
     Dosage: UNK, UNK
     Route: 048
     Dates: end: 20100201
  4. RANITIDINE [Suspect]
     Indication: HERNIA
     Dosage: UNK, UNK
  5. RANITIDINE [Suspect]
     Indication: GASTROOESOPHAGEAL REFLUX DISEASE
  6. VIAGRA [Suspect]
     Dosage: 100 MG, UNK

REACTIONS (8)
  - GASTRIC DISORDER [None]
  - GASTRIC OPERATION [None]
  - KNEE OPERATION [None]
  - MALAISE [None]
  - OEDEMA PERIPHERAL [None]
  - OFF LABEL USE [None]
  - SKIN DISCOLOURATION [None]
  - ULCER [None]
